FAERS Safety Report 23885127 (Version 1)
Quarter: 2024Q2

REPORT INFORMATION
  Report Type: Spontaneous
  Country: AU (occurrence: AU)
  Receive Date: 20240522
  Receipt Date: 20240522
  Transmission Date: 20240716
  Serious: Yes (Hospitalization, Other)
  Sender: FDA-Public Use
  Company Number: AU-SUN PHARMACEUTICAL INDUSTRIES LTD-2024R1-447382

PATIENT
  Age: 58 Year
  Sex: Male
  Weight: 92.1 kg

DRUGS (12)
  1. DOXORUBICIN [Suspect]
     Active Substance: DOXORUBICIN
     Indication: Diffuse large B-cell lymphoma
     Dosage: UNK (116 MILLIGRAM;INTERVAL: 3 WEEK)
     Route: 042
     Dates: start: 20231207
  2. CYCLOPHOSPHAMIDE [Suspect]
     Active Substance: CYCLOPHOSPHAMIDE
     Indication: Diffuse large B-cell lymphoma
     Dosage: UNK (1720 MILLIGRAM;INTERVAL: 3 WEEK)
     Route: 042
     Dates: start: 20231207
  3. POLATUZUMAB VEDOTIN [Suspect]
     Active Substance: POLATUZUMAB VEDOTIN
     Indication: Diffuse large B-cell lymphoma
     Dosage: UNK (178 MILLIGRAM;INTERVAL: 3 WEEK)
     Route: 042
     Dates: start: 20231206
  4. RITUXIMAB [Suspect]
     Active Substance: RITUXIMAB
     Indication: Diffuse large B-cell lymphoma
     Dosage: UNK (875 MILLIGRAM;INTERVAL: 3 WEEK)
     Route: 042
     Dates: start: 20231206
  5. PREDNISOLONE [Suspect]
     Active Substance: PREDNISOLONE
     Indication: Diffuse large B-cell lymphoma
     Dosage: UNK (100 MILLIGRAM;INTERVAL: 3 WEEK)
     Route: 048
     Dates: start: 20231206
  6. AMOXICILLIN [Concomitant]
     Active Substance: AMOXICILLIN
     Indication: Product used for unknown indication
     Dosage: UNK (1 GRAM; INTERVAL: 1 DAY)
     Route: 048
     Dates: start: 20230102
  7. APIXABAN [Concomitant]
     Active Substance: APIXABAN
     Indication: Product used for unknown indication
     Dosage: UNK (20 MILLIGRAM; INTERVAL: 1 DAY)
     Route: 048
     Dates: start: 20240116
  8. CYCLIZINE [Concomitant]
     Active Substance: CYCLIZINE
     Indication: Product used for unknown indication
     Dosage: UNK (25 MILLIGRAM; INTERVAL: 1 AS NECESSARY)
     Route: 048
     Dates: start: 20240103
  9. DOCUSATE SODIUM [Concomitant]
     Active Substance: DOCUSATE SODIUM
     Indication: Constipation
     Dosage: UNK (50 MILLIGRAM; INTERVAL: 1 AS NECESSARY)
     Route: 048
     Dates: start: 20231208
  10. ERGOCALCIFEROL [Concomitant]
     Active Substance: ERGOCALCIFEROL
     Indication: Product used for unknown indication
     Dosage: UNK (1000 INTERNATIONAL UNIT; INTERVAL: 1 DAY)
     Route: 048
  11. SULFAMETHOXAZOLE\TRIMETHOPRIM [Concomitant]
     Active Substance: SULFAMETHOXAZOLE\TRIMETHOPRIM
     Indication: Product used for unknown indication
     Dosage: UNK (160 MILLIGRAM; INTERVAL: 1 DAY)
     Route: 048
     Dates: start: 20231129
  12. VALACYCLOVIR HYDROCHLORIDE [Concomitant]
     Active Substance: VALACYCLOVIR HYDROCHLORIDE
     Indication: Product used for unknown indication
     Dosage: UNK (500 MILLIGRAM; INTERVAL: 1 DAY)
     Route: 048
     Dates: start: 20231129

REACTIONS (1)
  - Small intestinal obstruction [Recovered/Resolved]

NARRATIVE: CASE EVENT DATE: 20240208
